FAERS Safety Report 7628618-3 (Version None)
Quarter: 2011Q3

REPORT INFORMATION
  Report Type: 
  Country: None (occurrence: None)
  Receive Date: 20110722
  Receipt Date: 20110208
  Transmission Date: 20111222
  Serious: No
  Sender: FDA-Public Use
  Company Number: US-BAYER-2011-014028

PATIENT
  Sex: Female

DRUGS (5)
  1. ZOLOFT [Concomitant]
     Dosage: 25 MG TAB
  2. CELEBREX [Concomitant]
     Dosage: 400 MG CAP
  3. GLUCOSAMINE [Concomitant]
     Dosage: 750 MG CAP
  4. ESTRADIOL [Concomitant]
     Dosage: 2 MG TAB
  5. BETASERON [Suspect]
     Dosage: 0.25 MG, QOD
     Route: 058

REACTIONS (3)
  - DEPRESSION [None]
  - IRRITABILITY [None]
  - ACTIVITIES OF DAILY LIVING IMPAIRED [None]
